FAERS Safety Report 19767016 (Version 1)
Quarter: 2021Q3

REPORT INFORMATION
  Report Type: Spontaneous
  Country: US (occurrence: US)
  Receive Date: 20210830
  Receipt Date: 20210830
  Transmission Date: 20211014
  Serious: No
  Sender: FDA-Public Use
  Company Number: None

PATIENT
  Age: 68 Year
  Sex: Male
  Weight: 112.5 kg

DRUGS (6)
  1. ROSUVASTATIN CALCIUM. [Concomitant]
     Active Substance: ROSUVASTATIN CALCIUM
  2. ORAL CURCUMIN (1950MG) [Concomitant]
  3. ACETYLSALYCILIC ACID (LOW DOSE ASPIRIN ? 81MG/D) [Concomitant]
  4. CHLORHEXIDINE GLUCONATE. [Suspect]
     Active Substance: CHLORHEXIDINE GLUCONATE
     Indication: INFECTION PROPHYLAXIS
     Route: 061
     Dates: start: 20210724, end: 20210724
  5. PIPERIN (15 MG) [Concomitant]
  6. VITAMIN D3 (4000 IU/D) [Concomitant]

REACTIONS (3)
  - Rash papular [None]
  - Urticaria [None]
  - Rash erythematous [None]

NARRATIVE: CASE EVENT DATE: 20210725
